FAERS Safety Report 23896508 (Version 1)
Quarter: 2024Q2

REPORT INFORMATION
  Report Type: Report from Study
  Country: US (occurrence: US)
  Receive Date: 20240524
  Receipt Date: 20240524
  Transmission Date: 20240716
  Serious: Yes (Hospitalization, Other)
  Sender: FDA-Public Use
  Company Number: US-ABBVIE-5677256

PATIENT
  Age: 64 Year
  Sex: Male

DRUGS (1)
  1. HUMIRA [Suspect]
     Active Substance: ADALIMUMAB
     Indication: Product used for unknown indication
     Dosage: FORM STRENGTH UNITS: 40 MILLIGRAM?CF
     Route: 058
     Dates: start: 20120101

REACTIONS (5)
  - Hiatus hernia [Recovering/Resolving]
  - Weight decreased [Not Recovered/Not Resolved]
  - Abdominal pain upper [Recovered/Resolved]
  - Adverse food reaction [Unknown]
  - Illness [Unknown]

NARRATIVE: CASE EVENT DATE: 20220312
